FAERS Safety Report 23637634 (Version 4)
Quarter: 2024Q3

REPORT INFORMATION
  Report Type: Report from Study
  Country: JP (occurrence: JP)
  Receive Date: 20240315
  Receipt Date: 20240723
  Transmission Date: 20241017
  Serious: Yes (Hospitalization, Other)
  Sender: RECORDATI
  Company Number: JP-ORPHANEU-2024001758

PATIENT

DRUGS (26)
  1. ISTURISA [Suspect]
     Active Substance: OSILODROSTAT PHOSPHATE
     Indication: Cushing^s syndrome
     Dosage: 2 MILLIGRAM/DAILY, BID
     Route: 048
     Dates: start: 20221111, end: 20230405
  2. ISTURISA [Suspect]
     Active Substance: OSILODROSTAT PHOSPHATE
     Dosage: 4 MILLIGRAM/DAILY, BID
     Route: 048
     Dates: start: 20230406, end: 20230525
  3. ISTURISA [Suspect]
     Active Substance: OSILODROSTAT PHOSPHATE
     Dosage: 6 MILLIGRAM/DAILY, BID
     Route: 048
     Dates: start: 20230526, end: 20230531
  4. ISTURISA [Suspect]
     Active Substance: OSILODROSTAT PHOSPHATE
     Dosage: 8 MG DAILY, BID (3 MG AND 5 MG)
     Route: 048
     Dates: start: 20230601, end: 20230628
  5. ISTURISA [Suspect]
     Active Substance: OSILODROSTAT PHOSPHATE
     Dosage: 6 MILLIGRAM/DAILY, BID
     Route: 048
     Dates: start: 20230629, end: 20230823
  6. ISTURISA [Suspect]
     Active Substance: OSILODROSTAT PHOSPHATE
     Dosage: 8 MILLIGRAM/DAILY, BID
     Route: 048
     Dates: start: 20230824, end: 20231001
  7. ISTURISA [Suspect]
     Active Substance: OSILODROSTAT PHOSPHATE
     Dosage: 12 MILLIGRAM/DAILY, BID
     Route: 048
     Dates: start: 20231002, end: 202404
  8. ESAXERENONE [Concomitant]
     Active Substance: ESAXERENONE
     Indication: Disease complication
     Dosage: 1.25 MG DAILY
     Route: 048
  9. SULFAMETHOXAZOLE\TRIMETHOPRIM [Concomitant]
     Active Substance: SULFAMETHOXAZOLE\TRIMETHOPRIM
     Indication: Prophylaxis
     Dosage: 1 TABLET DAILY
     Route: 048
  10. ZOVIRAX [Concomitant]
     Active Substance: ACYCLOVIR
     Indication: Prophylaxis
     Dosage: 200 MG DAILY
     Route: 048
  11. POTASSIUM CHLORIDE [Concomitant]
     Active Substance: POTASSIUM CHLORIDE
     Indication: Disease complication
     Dosage: 1800 MG DAILY
     Route: 048
  12. VONOPRAZAN FUMARATE [Concomitant]
     Active Substance: VONOPRAZAN FUMARATE
     Indication: Prophylaxis
     Dosage: 20 MG DAILY
     Route: 048
  13. LOXOPROFEN [Concomitant]
     Active Substance: LOXOPROFEN
     Indication: Pain prophylaxis
     Dosage: 60MG TO 240 MG DAILY
     Route: 048
  14. OXYCONTIN [Concomitant]
     Active Substance: OXYCODONE HYDROCHLORIDE
     Indication: Product used for unknown indication
     Dosage: 30 MG DAILY
     Route: 048
  15. AFINITOR [Concomitant]
     Active Substance: EVEROLIMUS
     Indication: Product used for unknown indication
     Dosage: 10MG DAILY
     Route: 048
     Dates: end: 20231005
  16. ZANOSAR [Concomitant]
     Active Substance: STREPTOZOCIN
     Indication: Product used for unknown indication
     Dosage: 830 MG DAILY INJECTION
     Dates: start: 20231106, end: 20231110
  17. ZANOSAR [Concomitant]
     Active Substance: STREPTOZOCIN
     Dosage: 830 MG DAILY  INJECTION
     Dates: start: 20231218, end: 20231222
  18. ZANOSAR [Concomitant]
     Active Substance: STREPTOZOCIN
     Dosage: 830 MG DAILY INJECTION
     Dates: start: 20240219, end: 20240223
  19. FLUOROURACIL [Concomitant]
     Active Substance: FLUOROURACIL
     Indication: Product used for unknown indication
     Dosage: 660 MG DAILY
     Dates: start: 20231106, end: 20231110
  20. FLUOROURACIL [Concomitant]
     Active Substance: FLUOROURACIL
     Dosage: 660 MG DAILY
     Dates: start: 20231218, end: 20231222
  21. FLUOROURACIL [Concomitant]
     Active Substance: FLUOROURACIL
     Dosage: 660 MG DAILY
     Dates: start: 20240219, end: 20240223
  22. METYRAPONE [Concomitant]
     Active Substance: METYRAPONE
     Indication: Product used for unknown indication
     Dosage: 250 MG DAILY, CAPSULE
     Dates: start: 20221124, end: 20221207
  23. METYRAPONE [Concomitant]
     Active Substance: METYRAPONE
     Dosage: 750 MG DAILY, CAPSULE
     Dates: start: 20221208, end: 20230322
  24. DEXAMETHASONE SODIUM PHOSPHATE [Concomitant]
     Active Substance: DEXAMETHASONE PHOSPHATE\DEXAMETHASONE SODIUM PHOSPHATE
     Indication: Product used for unknown indication
     Dosage: 6.6 MG DAILY
     Dates: start: 20231106, end: 20231110
  25. DEXAMETHASONE SODIUM PHOSPHATE [Concomitant]
     Active Substance: DEXAMETHASONE PHOSPHATE\DEXAMETHASONE SODIUM PHOSPHATE
     Dosage: 6.6 MG DAILY
     Dates: start: 20231218, end: 20231222
  26. DEXAMETHASONE SODIUM PHOSPHATE [Concomitant]
     Active Substance: DEXAMETHASONE PHOSPHATE\DEXAMETHASONE SODIUM PHOSPHATE
     Dosage: 6.6 MG DAILY
     Dates: start: 20240219, end: 20240223

REACTIONS (5)
  - Feeling abnormal [Recovered/Resolved]
  - Vomiting [Recovered/Resolved]
  - Nausea [Recovered/Resolved]
  - Disease progression [Recovered/Resolved]
  - Therapeutic product effect incomplete [Recovered/Resolved]

NARRATIVE: CASE EVENT DATE: 20230406
